FAERS Safety Report 7358616-9 (Version None)
Quarter: 2011Q1

REPORT INFORMATION
  Report Type: 
  Country: None (occurrence: None)
  Receive Date: 20110317
  Receipt Date: 20110311
  Transmission Date: 20110831
  Serious: Yes (Hospitalization)
  Sender: FDA-Public Use
  Company Number: ES-ELI_LILLY_AND_COMPANY-ES201103003952

PATIENT
  Age: 93 Year
  Sex: Female

DRUGS (6)
  1. XERISTAR [Suspect]
     Indication: DEPRESSION
     Dosage: 30 MG, DAILY (1/D)
     Route: 048
     Dates: start: 20100101
  2. MADOPAR [Concomitant]
     Indication: PARKINSON'S DISEASE
     Dosage: 1 D/F, UNKNOWN
  3. MINODIAB [Concomitant]
     Indication: TYPE 2 DIABETES MELLITUS
     Dosage: 5 MG, UNKNOWN
     Route: 048
     Dates: start: 20100101, end: 20110201
  4. LYRICA [Concomitant]
     Indication: NEURALGIA
     Dosage: 300 MG, UNKNOWN
  5. OMEPRAZOLE [Concomitant]
     Indication: PROPHYLAXIS AGAINST GASTROINTESTINAL ULCER
  6. AMILORIDE HCL AND HYDROCHLOROTHIAZIDE [Concomitant]
     Indication: HYPERTENSION
     Dosage: 1 D/F, DAILY (1/D)
     Route: 048
     Dates: start: 20100101, end: 20110201

REACTIONS (3)
  - ALTERED STATE OF CONSCIOUSNESS [None]
  - HYPONATRAEMIA [None]
  - HYPOGLYCAEMIA [None]
